FAERS Safety Report 10761083 (Version 1)
Quarter: 2015Q1

REPORT INFORMATION
  Report Type: Spontaneous
  Country: ES (occurrence: ES)
  Receive Date: 20150204
  Receipt Date: 20150204
  Transmission Date: 20150721
  Serious: Yes (Hospitalization)
  Sender: FDA-Public Use
  Company Number: ES-SA-2015SA009655

PATIENT
  Age: 86 Year
  Sex: Female

DRUGS (10)
  1. TRAMADOL/PARACETAMOL [Concomitant]
     Indication: PAIN
     Dosage: 1-1-1
     Route: 048
     Dates: start: 20140224
  2. SINTROM [Interacting]
     Active Substance: ACENOCOUMAROL
     Indication: ATRIAL FIBRILLATION
     Dosage: 0-0-2
     Route: 048
     Dates: start: 20140302, end: 20140314
  3. SPIRIVA [Concomitant]
     Active Substance: TIOTROPIUM BROMIDE MONOHYDRATE
     Indication: ASTHMA
     Dosage: 1 INH
     Route: 055
     Dates: start: 2007
  4. HIDROFEROL [Concomitant]
     Active Substance: CALCIFEDIOL
     Indication: HYPOVITAMINOSIS
     Dosage: 0-1-0
     Route: 048
     Dates: start: 20140224
  5. ACFOL [Concomitant]
     Active Substance: FOLIC ACID
     Dosage: 0-1-0
     Route: 048
  6. DIGOXIN. [Concomitant]
     Active Substance: DIGOXIN
     Indication: ATRIAL FIBRILLATION
     Dosage: 1/2-0-0
     Route: 048
     Dates: start: 20140224
  7. CLEXANE [Suspect]
     Active Substance: ENOXAPARIN SODIUM
     Indication: THROMBOSIS PROPHYLAXIS
     Dosage: SOLUTION FOR INJECTION IN PRE-FILLED SYRINGE, 1AMPOULE
     Route: 058
     Dates: start: 20140219, end: 20140314
  8. VENTOLINE [Concomitant]
     Active Substance: ALBUTEROL
     Indication: CHRONIC OBSTRUCTIVE PULMONARY DISEASE
     Dosage: 2-0-2
     Route: 055
     Dates: start: 2007
  9. LORMETAZEPAM [Concomitant]
     Active Substance: LORMETAZEPAM
     Indication: INSOMNIA
     Dosage: 0-0-1
     Route: 048
     Dates: start: 2007
  10. VESICARE [Concomitant]
     Active Substance: SOLIFENACIN SUCCINATE
     Indication: URINARY INCONTINENCE
     Dosage: 0-1-0
     Route: 048
     Dates: start: 1988

REACTIONS (4)
  - Drug interaction [Unknown]
  - Lower gastrointestinal haemorrhage [Recovered/Resolved]
  - Anaemia [Recovered/Resolved]
  - Haemodynamic instability [Recovered/Resolved]

NARRATIVE: CASE EVENT DATE: 20140314
